FAERS Safety Report 5663531-2 (Version None)
Quarter: 2008Q1

REPORT INFORMATION
  Report Type: 
  Country: None (occurrence: None)
  Receive Date: 20080307
  Receipt Date: 20080225
  Transmission Date: 20080703
  Serious: Yes (Death, Hospitalization)
  Sender: FDA-Public Use
  Company Number: 2007S1012668

PATIENT
  Age: 74 Year
  Sex: Male
  Weight: 55.9 kg

DRUGS (7)
  1. METHOTREXATE [Suspect]
     Indication: RHEUMATOID ARTHRITIS
     Dosage: 20 MG;WEEKLY;ORAL
     Route: 048
     Dates: start: 20070822, end: 20071017
  2. HUMIRA [Suspect]
     Indication: RHEUMATOID ARTHRITIS
     Dosage: 0.8 ML; SUBCUTANEOUS
     Route: 058
     Dates: start: 20070822, end: 20071017
  3. FOLIC ACID [Concomitant]
  4. PARACETAMOL [Concomitant]
  5. OMEPRAZOLE [Concomitant]
  6. ALPRAZOLAM [Concomitant]
  7. ACEMETACIN [Concomitant]

REACTIONS (3)
  - ANXIETY [None]
  - PHARYNGITIS [None]
  - SUDDEN DEATH [None]
